FAERS Safety Report 20214862 (Version 2)
Quarter: 2021Q4

REPORT INFORMATION
  Report Type: Spontaneous
  Country: US (occurrence: US)
  Receive Date: 20211222
  Receipt Date: 20211228
  Transmission Date: 20220304
  Serious: No
  Sender: FDA-Public Use
  Company Number: US-NOVARTISTESTPH-NVSC2021US292105

PATIENT
  Sex: Male

DRUGS (1)
  1. COSENTYX [Suspect]
     Active Substance: SECUKINUMAB
     Indication: Product used for unknown indication
     Route: 065

REACTIONS (6)
  - Pruritus [Unknown]
  - Food allergy [Unknown]
  - Blood test abnormal [Unknown]
  - Product supply issue [Unknown]
  - Urticaria [Unknown]
  - Product dose omission issue [Unknown]
